FAERS Safety Report 18178099 (Version 1)
Quarter: 2020Q3

REPORT INFORMATION
  Report Type: Spontaneous
  Country: US (occurrence: US)
  Receive Date: 20200821
  Receipt Date: 20200821
  Transmission Date: 20201103
  Serious: Yes (Hospitalization, Other)
  Sender: FDA-Public Use
  Company Number: US-MICRO LABS LIMITED-ML2020-02449

PATIENT
  Age: 66 Year
  Sex: Male

DRUGS (3)
  1. LEVETIRACETAM. [Suspect]
     Active Substance: LEVETIRACETAM
     Indication: HOLMES TREMOR
  2. PROPRANOLOL [Concomitant]
     Active Substance: PROPRANOLOL HYDROCHLORIDE
     Indication: HOLMES TREMOR
  3. CARBIDOPA LEVODOPA [Suspect]
     Active Substance: CARBIDOPA\LEVODOPA
     Indication: HOLMES TREMOR

REACTIONS (5)
  - Resting tremor [Recovered/Resolved]
  - Dystonia [Recovered/Resolved]
  - Pain in jaw [Recovering/Resolving]
  - Condition aggravated [Unknown]
  - Intention tremor [Recovered/Resolved]
